FAERS Safety Report 22975980 (Version 3)
Quarter: 2023Q4

REPORT INFORMATION
  Report Type: Report from Study
  Country: US (occurrence: US)
  Receive Date: 20230925
  Receipt Date: 20231102
  Transmission Date: 20240109
  Serious: No
  Sender: FDA-Public Use
  Company Number: US-002147023-NVSC2023US201795

PATIENT
  Sex: Female
  Weight: 88.45 kg

DRUGS (3)
  1. COSENTYX [Suspect]
     Active Substance: SECUKINUMAB
     Indication: Psoriasis
     Dosage: 300 MG, QMO
     Route: 058
  2. CLOBETASOL [Suspect]
     Active Substance: CLOBETASOL
     Indication: Psoriasis
     Dosage: UNK
     Route: 065
  3. MINOXIDIL [Suspect]
     Active Substance: MINOXIDIL
     Indication: Alopecia
     Dosage: UNK
     Route: 065

REACTIONS (6)
  - Staphylococcal infection [Recovering/Resolving]
  - Alopecia scarring [Unknown]
  - Psoriasis [Unknown]
  - Skin exfoliation [Unknown]
  - Incorrect dose administered [Unknown]
  - Therapeutic product effect incomplete [Unknown]
